FAERS Safety Report 8845372 (Version 2)
Quarter: 2012Q4

REPORT INFORMATION
  Report Type: 
  Country: ES (occurrence: ES)
  Receive Date: 20121017
  Receipt Date: 20121115
  Transmission Date: 20130627
  Serious: Yes (Hospitalization)
  Sender: FDA-Public Use
  Company Number: ES-ELI_LILLY_AND_COMPANY-ES201210002594

PATIENT
  Age: 70 Year
  Sex: Female
  Weight: 75 kg

DRUGS (12)
  1. FORSTEO [Suspect]
     Indication: OSTEOPOROSIS
     Dosage: 20 ug, qd
     Route: 058
     Dates: start: 20081219, end: 20101222
  2. FORSTEO [Suspect]
     Dosage: 20 ug, qd
     Route: 058
     Dates: start: 20110811
  3. ATORVASTATIN [Concomitant]
     Indication: BLOOD CHOLESTEROL ABNORMAL
     Dosage: 10 mg, qd
     Route: 048
  4. ADIRO [Concomitant]
     Indication: CARDIAC DISORDER
     Dosage: 100 mg, qd
     Route: 048
  5. CORDIPLAST [Concomitant]
     Indication: CARDIAC DISORDER
     Dosage: UNK
     Route: 062
  6. ARTILOG [Concomitant]
     Indication: INFLAMMATION
     Dosage: 200 mg, qd
     Route: 048
  7. VESICARE [Concomitant]
     Indication: URINARY INCONTINENCE
     Dosage: 25 mg, qd
     Route: 048
  8. ESOMEPRAZOLE [Concomitant]
     Indication: GASTRIC DISORDER
     Dosage: 20 mg, qd
     Route: 048
  9. ZALDIAR [Concomitant]
     Indication: PAIN
     Dosage: UNK
  10. PARACETAMOL [Concomitant]
     Dosage: UNK
  11. VITAMIN D NOS [Concomitant]
     Indication: OSTEOPOROSIS
     Dosage: UNK
  12. DAFLON [Concomitant]
     Indication: PERIPHERAL VASCULAR DISORDER
     Dosage: 500 mg, bid
     Route: 048

REACTIONS (5)
  - Osteoporosis [Unknown]
  - Limb asymmetry [Not Recovered/Not Resolved]
  - Gait disturbance [Not Recovered/Not Resolved]
  - Abdominal pain [Not Recovered/Not Resolved]
  - Incorrect drug administration duration [Not Recovered/Not Resolved]
